FAERS Safety Report 6420576-2 (Version None)
Quarter: 2009Q4

REPORT INFORMATION
  Report Type: 
  Country: None (occurrence: None)
  Receive Date: 20091027
  Receipt Date: 20091013
  Transmission Date: 20100525
  Serious: Yes (Other)
  Sender: FDA-Public Use
  Company Number: 2009AP004177

PATIENT
  Age: 38 Year
  Sex: Male

DRUGS (4)
  1. GABAPENTIN [Suspect]
     Indication: ANXIETY
  2. GABAPENTIN [Suspect]
     Indication: DEPRESSION
  3. BUSPIRONE HCL [Concomitant]
  4. BUPROPION HCL [Concomitant]

REACTIONS (7)
  - CONFUSIONAL STATE [None]
  - DELIRIUM [None]
  - DRUG ABUSE [None]
  - DRUG DEPENDENCE [None]
  - DRUG TOXICITY [None]
  - SELF-MEDICATION [None]
  - WITHDRAWAL SYNDROME [None]
